FAERS Safety Report 24295255 (Version 1)
Quarter: 2024Q3

REPORT INFORMATION
  Report Type: Spontaneous
  Country: US (occurrence: US)
  Receive Date: 20240907
  Receipt Date: 20240907
  Transmission Date: 20241017
  Serious: Yes (Other)
  Sender: GLENMARK
  Company Number: US-MLMSERVICE-20240819-PI167204-00323-1

PATIENT

DRUGS (6)
  1. TRIAMCINOLONE ACETONIDE [Suspect]
     Active Substance: TRIAMCINOLONE ACETONIDE
     Indication: Alopecia areata
     Dosage: UNK, MONTHLY IL-TAC INJECTION OF 9 CC, 2.5 MG/CC ACROSS THE SCALP, (FORMULATION: INJECTION)
     Route: 026
     Dates: start: 202106, end: 2021
  2. TRIAMCINOLONE ACETONIDE [Suspect]
     Active Substance: TRIAMCINOLONE ACETONIDE
     Dosage: MONTHLY IL-TAC INJECTION OF 2.5 MG/CC, ACROSS THE SCALP
     Route: 026
     Dates: start: 202106, end: 2021
  3. TRIAMCINOLONE ACETONIDE [Suspect]
     Active Substance: TRIAMCINOLONE ACETONIDE
     Dosage: 4 CC (DOWN)
     Route: 026
     Dates: start: 202201, end: 202210
  4. TRIAMCINOLONE ACETONIDE [Suspect]
     Active Substance: TRIAMCINOLONE ACETONIDE
     Dosage: 7 TREATMENTS AT THE REDUCED DOSE
     Route: 026
     Dates: start: 202210, end: 202307
  5. MINOXIDIL [Concomitant]
     Active Substance: MINOXIDIL
     Indication: Alopecia areata
     Dosage: UNK, ROUTE: ROA-20085000
     Route: 065
     Dates: start: 202106
  6. CLOBETASOL [Concomitant]
     Active Substance: CLOBETASOL
     Indication: Alopecia areata
     Dosage: UNK
     Route: 065
     Dates: start: 202106

REACTIONS (1)
  - Central serous chorioretinopathy [Recovering/Resolving]

NARRATIVE: CASE EVENT DATE: 20210101
